FAERS Safety Report 5154787-3 (Version None)
Quarter: 2006Q4

REPORT INFORMATION
  Report Type: 
  Country: None (occurrence: None)
  Receive Date: 20061116
  Receipt Date: 20061116
  Transmission Date: 20070319
  Serious: Yes (Other)
  Sender: FDA-Public Use
  Company Number: None

PATIENT
  Age: 56 Year
  Sex: Female
  Weight: 57.1532 kg

DRUGS (3)
  1. SERTRALINE HCL [Suspect]
     Indication: ANXIETY
     Dosage: 1.5 TABLETS -75 MG-   1 X DAILY  PO
     Route: 048
     Dates: start: 20060829, end: 20061108
  2. SERTRALINE HCL [Suspect]
     Indication: DEPRESSION
     Dosage: 1.5 TABLETS -75 MG-   1 X DAILY  PO
     Route: 048
     Dates: start: 20060829, end: 20061108
  3. SERTRALINE HCL [Suspect]
     Indication: PANIC ATTACK
     Dosage: 1.5 TABLETS -75 MG-   1 X DAILY  PO
     Route: 048
     Dates: start: 20060829, end: 20061108

REACTIONS (5)
  - ANXIETY [None]
  - DRUG INEFFECTIVE [None]
  - FEELING ABNORMAL [None]
  - MIGRAINE [None]
  - PHARMACEUTICAL PRODUCT COMPLAINT [None]
